FAERS Safety Report 23638356 (Version 3)
Quarter: 2024Q2

REPORT INFORMATION
  Report Type: Spontaneous
  Country: BR (occurrence: BR)
  Receive Date: 20240315
  Receipt Date: 20240402
  Transmission Date: 20240716
  Serious: Yes (Death, Other)
  Sender: FDA-Public Use
  Company Number: BR-009507513-2403BRA004519

PATIENT
  Age: 81 Year
  Sex: Female

DRUGS (1)
  1. PEMBROLIZUMAB [Suspect]
     Active Substance: PEMBROLIZUMAB
     Indication: Neoplasm malignant
     Dosage: UNK
     Dates: start: 20230720, end: 20230720

REACTIONS (11)
  - Pneumonia [Fatal]
  - Hepatic neoplasm [Unknown]
  - Somnolence [Unknown]
  - Arthralgia [Unknown]
  - Limb discomfort [Unknown]
  - Food refusal [Unknown]
  - Fatigue [Unknown]
  - Gait inability [Unknown]
  - Muscular weakness [Unknown]
  - Depressed mood [Unknown]
  - Speech disorder [Unknown]

NARRATIVE: CASE EVENT DATE: 20230101
